FAERS Safety Report 8991772 (Version 1)
Quarter: 2012Q4

REPORT INFORMATION
  Report Type: Report from Study
  Country: CA (occurrence: CA)
  Receive Date: 20121231
  Receipt Date: 20121231
  Transmission Date: 20130627
  Serious: Yes (Hospitalization)
  Sender: FDA-Public Use
  Company Number: CA-JNJFOC-20121212894

PATIENT
  Age: 71 Year
  Sex: Female
  Weight: 64.86 kg

DRUGS (11)
  1. REMICADE [Suspect]
     Indication: RHEUMATOID ARTHRITIS
     Route: 042
     Dates: start: 2007
  2. METHOTREXATE [Concomitant]
     Dosage: 8 tablets
     Route: 048
  3. FOLIC ACID [Concomitant]
     Route: 065
  4. CELEXA [Concomitant]
     Route: 065
  5. RANITIDINE [Concomitant]
     Route: 048
  6. APO-SULIN [Concomitant]
     Route: 065
  7. SALAGEN [Concomitant]
     Route: 065
  8. GRAVOL [Concomitant]
     Indication: NAUSEA
     Dosage: with methotrexate
     Route: 065
  9. HYDROXYZINE [Concomitant]
     Indication: PRURITUS
     Dosage: with methotrexate
     Route: 065
  10. NEXIUM [Concomitant]
     Route: 065
  11. AN UNKNOWN MEDICATION [Concomitant]
     Indication: KNEE OPERATION
     Route: 065

REACTIONS (2)
  - Biliary colic [Recovered/Resolved]
  - Knee arthroplasty [Recovering/Resolving]
